FAERS Safety Report 11591188 (Version 4)
Quarter: 2015Q4

REPORT INFORMATION
  Report Type: Spontaneous
  Country: US (occurrence: US)
  Receive Date: 20151004
  Receipt Date: 20151008
  Transmission Date: 20160304
  Serious: Yes (Hospitalization, Other)
  Sender: FDA-Public Use
  Company Number: CHPA2015US011613

PATIENT
  Age: 74 Year
  Sex: Female

DRUGS (2)
  1. VOLTAREN [Suspect]
     Active Substance: DICLOFENAC SODIUM
     Indication: PAIN
  2. VOLTAREN [Suspect]
     Active Substance: DICLOFENAC SODIUM
     Indication: ARTHRITIS
     Dosage: 4 G, BID
     Route: 061

REACTIONS (14)
  - Fall [Unknown]
  - Nerve compression [Recovering/Resolving]
  - Pain in extremity [Recovered/Resolved]
  - Inappropriate schedule of drug administration [Unknown]
  - Multiple fractures [Recovering/Resolving]
  - Blood magnesium decreased [Recovered/Resolved]
  - Blood potassium decreased [Recovered/Resolved]
  - Product use issue [Unknown]
  - Fall [Recovering/Resolving]
  - Movement disorder [Not Recovered/Not Resolved]
  - Drug administered at inappropriate site [Unknown]
  - Urinary tract infection [Recovered/Resolved]
  - Therapeutic response unexpected [Unknown]
  - Back injury [Recovering/Resolving]

NARRATIVE: CASE EVENT DATE: 2014
